FAERS Safety Report 6533146-2 (Version None)
Quarter: 2010Q1

REPORT INFORMATION
  Report Type: 
  Country: None (occurrence: None)
  Receive Date: 20100111
  Receipt Date: 20100105
  Transmission Date: 20100710
  Serious: Yes (Other)
  Sender: FDA-Public Use
  Company Number: US-ROCHE-677419

PATIENT
  Sex: Female
  Weight: 45.4 kg

DRUGS (3)
  1. AVASTIN [Suspect]
     Route: 042
     Dates: start: 20090524
  2. AVASTIN [Suspect]
     Dosage: LAST DOSE PRIOR  TO THE EVENT: 13 AUGUST 2009.
     Route: 042
     Dates: start: 20090813
  3. CAPECITABINE [Concomitant]
     Dosage: FREQ ID, EVERY 14 DAYS OFF 7 DAYS
     Route: 065
     Dates: start: 20090813, end: 20090824

REACTIONS (2)
  - CANDIDIASIS [None]
  - SCRATCH [None]
